FAERS Safety Report 5771642-6 (Version None)
Quarter: 2008Q2

REPORT INFORMATION
  Report Type: 
  Country: None (occurrence: None)
  Receive Date: 20080613
  Receipt Date: 20080528
  Transmission Date: 20081010
  Serious: Yes (Hospitalization)
  Sender: FDA-Public Use
  Company Number: JP-ABBOTT-08P-087-0454905-00

PATIENT
  Age: 21 Year
  Sex: Male

DRUGS (24)
  1. VALPROATE SODIUM [Suspect]
     Indication: SCHIZOPHRENIA
     Dosage: 600 MG DAILY
     Route: 048
     Dates: start: 20080227, end: 20080425
  2. ZOTEPINE [Suspect]
     Indication: SCHIZOPHRENIA
     Route: 048
     Dates: start: 20080305
  3. ZOTEPINE [Suspect]
     Route: 048
     Dates: start: 20080301, end: 20080319
  4. OLANZAPINE [Suspect]
     Indication: SCHIZOPHRENIA
     Dosage: 20 MG DAILY
     Route: 048
     Dates: start: 20080220, end: 20080425
  5. QUETIAPINE FUMARATE [Suspect]
     Indication: SCHIZOPHRENIA
     Dosage: 200 MG DAILY
     Route: 048
     Dates: start: 20080331, end: 20080408
  6. QUETIAPINE FUMARATE [Suspect]
     Dosage: 600 MG DAILY
     Route: 048
     Dates: start: 20080409, end: 20080425
  7. RISPERIDONE [Suspect]
     Indication: SCHIZOPHRENIA
     Route: 048
     Dates: start: 20080223, end: 20080326
  8. LITHIUM CARBONATE [Suspect]
     Indication: SCHIZOPHRENIA
     Dosage: 400 MG DAILY
     Route: 048
     Dates: start: 20080227, end: 20080304
  9. LITHIUM CARBONATE [Suspect]
     Dosage: 800 MG DAILY
     Route: 048
     Dates: start: 20080305, end: 20080425
  10. HALOPERIDOL [Suspect]
     Indication: SCHIZOPHRENIA
     Dosage: 9 MG DAILY
     Route: 048
     Dates: end: 20080311
  11. HALOPERIDOL [Suspect]
     Dosage: 4.5 MG DAILY
     Route: 048
     Dates: start: 20080312, end: 20080318
  12. HALOPERIDOL [Suspect]
     Dosage: 9 MG DAILY
     Route: 048
     Dates: start: 20080319, end: 20080320
  13. HALOPERIDOL [Suspect]
     Dosage: 4.5 MG DAILY
     Route: 048
     Dates: start: 20080321, end: 20080326
  14. TEPRENONE [Concomitant]
     Indication: DRUG USE FOR UNKNOWN INDICATION
     Dosage: GRANULES
     Dates: start: 20080220, end: 20080425
  15. MOSAPRIDE [Concomitant]
     Indication: DRUG USE FOR UNKNOWN INDICATION
     Dates: start: 20080220, end: 20080425
  16. LACTOMIN [Concomitant]
     Indication: DRUG USE FOR UNKNOWN INDICATION
     Dosage: GRANULES
     Dates: start: 20080220, end: 20080425
  17. FAMOTIDINE [Concomitant]
     Indication: DRUG USE FOR UNKNOWN INDICATION
     Route: 048
     Dates: start: 20080220, end: 20080425
  18. BROMAZEPAM [Concomitant]
     Indication: DRUG USE FOR UNKNOWN INDICATION
     Route: 048
     Dates: start: 20080220, end: 20080425
  19. FLUNITRAZEPAM [Concomitant]
     Indication: DRUG USE FOR UNKNOWN INDICATION
     Route: 048
     Dates: start: 20080227, end: 20080425
  20. NITRAZEPAM [Concomitant]
     Indication: DRUG USE FOR UNKNOWN INDICATION
     Route: 048
     Dates: start: 20080227, end: 20080425
  21. PROMETHAZINE HCL [Concomitant]
     Indication: DRUG USE FOR UNKNOWN INDICATION
     Route: 048
     Dates: start: 20080305, end: 20080425
  22. BIPERIDEN HYDROCHLORIDE TAB [Concomitant]
     Indication: DRUG USE FOR UNKNOWN INDICATION
     Route: 048
     Dates: start: 20080312, end: 20080425
  23. LEVOMEPROMAZINE [Concomitant]
     Indication: DRUG USE FOR UNKNOWN INDICATION
     Route: 048
     Dates: start: 20080319, end: 20080321
  24. LEVOMEPROMAZINE [Concomitant]

REACTIONS (7)
  - FLUID INTAKE REDUCED [None]
  - HYPERHIDROSIS [None]
  - MUSCLE RIGIDITY [None]
  - NEUROLEPTIC MALIGNANT SYNDROME [None]
  - RHABDOMYOLYSIS [None]
  - SALIVARY HYPERSECRETION [None]
  - UNEVALUABLE EVENT [None]
